FAERS Safety Report 12672984 (Version 1)
Quarter: 2016Q3

REPORT INFORMATION
  Report Type: Spontaneous
  Country: FR (occurrence: FR)
  Receive Date: 20160822
  Receipt Date: 20160822
  Transmission Date: 20161109
  Serious: Yes (Hospitalization)
  Sender: FDA-Public Use
  Company Number: FR-SA-2016SA151945

PATIENT
  Age: 45 Year
  Sex: Female

DRUGS (14)
  1. SOLIAN [Suspect]
     Active Substance: AMISULPRIDE
     Route: 048
  2. ZOLPIDEM [Suspect]
     Active Substance: ZOLPIDEM\ZOLPIDEM TARTRATE
     Route: 048
     Dates: start: 20160718, end: 20160718
  3. XANAX [Suspect]
     Active Substance: ALPRAZOLAM
     Route: 048
     Dates: start: 20160718, end: 20160718
  4. SOLIAN [Suspect]
     Active Substance: AMISULPRIDE
     Route: 048
     Dates: start: 20160718, end: 20160718
  5. OMEPRAZOLE. [Suspect]
     Active Substance: OMEPRAZOLE
     Route: 048
     Dates: start: 20160718, end: 20160718
  6. DIAZEPAM. [Suspect]
     Active Substance: DIAZEPAM
     Route: 048
     Dates: start: 20160718, end: 20160718
  7. TERCIAN [Concomitant]
     Active Substance: CYAMEMAZINE
     Route: 065
  8. IBUPROFEN. [Suspect]
     Active Substance: IBUPROFEN
     Route: 048
     Dates: start: 20160718, end: 20160718
  9. CLORAZEPATE DIPOTASSIUM. [Suspect]
     Active Substance: CLORAZEPATE DIPOTASSIUM
     Route: 048
     Dates: start: 20160718, end: 20160718
  10. ZYPREXA [Suspect]
     Active Substance: OLANZAPINE
     Route: 048
     Dates: start: 20160618, end: 20160618
  11. ZYPREXA [Suspect]
     Active Substance: OLANZAPINE
     Route: 065
  12. METEOSPASMYL [Suspect]
     Active Substance: ALVERINE CITRATE\DIMETHICONE
     Route: 048
     Dates: start: 20160718, end: 20160718
  13. SERTRALINE [Concomitant]
     Active Substance: SERTRALINE HYDROCHLORIDE
     Route: 065
  14. SERTRALINE [Concomitant]
     Active Substance: SERTRALINE HYDROCHLORIDE
     Route: 065

REACTIONS (7)
  - Sinus tachycardia [Unknown]
  - Miosis [Recovered/Resolved]
  - Electrocardiogram QT prolonged [Unknown]
  - Disturbance in attention [Recovered/Resolved]
  - Coma [Recovered/Resolved]
  - Extensor plantar response [Recovered/Resolved]
  - Blood pressure systolic increased [Unknown]

NARRATIVE: CASE EVENT DATE: 20160718
